FAERS Safety Report 7535417-X (Version None)
Quarter: 2011Q2

REPORT INFORMATION
  Report Type: 
  Country: None (occurrence: None)
  Receive Date: 20110609
  Receipt Date: 20080521
  Transmission Date: 20111010
  Serious: Yes (Death)
  Sender: FDA-Public Use
  Company Number: PHHO2007MX18501

PATIENT
  Sex: Male

DRUGS (4)
  1. ETORICOXIB [Concomitant]
     Indication: RHEUMATOID ARTHRITIS
     Dosage: 90 MG, UNK
     Route: 048
     Dates: start: 20070726, end: 20070903
  2. ARAVA [Concomitant]
     Indication: RHEUMATOID ARTHRITIS
     Dosage: 20 MG, UNK
     Route: 048
     Dates: start: 20060810, end: 20070903
  3. LEDERTREXATE [Concomitant]
     Indication: RHEUMATOID ARTHRITIS
     Dosage: 12.5 MG, UNK
     Dates: start: 20060810, end: 20070903
  4. ZOLEDRONIC ACID [Suspect]
     Dosage: 1 AMPOULE 5MG/100ML I.V/ YEAR
     Route: 042
     Dates: start: 20070717

REACTIONS (1)
  - PNEUMONIA [None]
